FAERS Safety Report 20740027 (Version 1)
Quarter: 2022Q2

REPORT INFORMATION
  Report Type: Spontaneous
  Country: US (occurrence: US)
  Receive Date: 20220422
  Receipt Date: 20220422
  Transmission Date: 20220721
  Serious: No
  Sender: FDA-Public Use
  Company Number: US-PFIZER INC-202200465304

PATIENT
  Age: 69 Year
  Sex: Female
  Weight: 70.295 kg

DRUGS (3)
  1. XANAX [Suspect]
     Active Substance: ALPRAZOLAM
     Indication: Anxiety
     Dosage: 1 MG, 3X/DAY, (TAKE 1 TABLET BY MOUTH 3 TIMES A DAY, 1 MORNING, 1 MIDDAY, 1 BEDTIME)
     Route: 048
  2. BENICAR [Concomitant]
     Active Substance: OLMESARTAN MEDOXOMIL
     Indication: Hypertension
     Dosage: 12.5 MG, 1X/DAY
  3. TRAMADOL [Concomitant]
     Active Substance: TRAMADOL
     Indication: Knee operation
     Dosage: 50 MG, AS NEEDED

REACTIONS (4)
  - Drug ineffective [Unknown]
  - Middle insomnia [Unknown]
  - Product physical issue [Unknown]
  - Poor quality product administered [Unknown]
